FAERS Safety Report 9061416 (Version 2)
Quarter: 2013Q1

REPORT INFORMATION
  Report Type: Spontaneous
  Country: US (occurrence: None)
  Receive Date: 20130118
  Receipt Date: 20130322
  Transmission Date: 20140127
  Serious: Yes (Life-Threatening, Hospitalization)
  Sender: FDA-Public Use
  Company Number: ACO_33692_2013

PATIENT
  Age: 68 Year
  Sex: Female

DRUGS (2)
  1. AMPYRA (DALFAMPRIDINE) TABLET, 10MG [Suspect]
     Indication: MOBILITY DECREASED
     Dates: start: 20110101, end: 20121026
  2. COPAXONE (GLATIRAMER ACETATE) [Concomitant]

REACTIONS (4)
  - Loss of consciousness [None]
  - Multiple sclerosis [None]
  - Escherichia infection [None]
  - Urinary tract infection [None]
